FAERS Safety Report 8097484-7 (Version None)
Quarter: 2012Q1

REPORT INFORMATION
  Report Type: 
  Country: None (occurrence: None)
  Receive Date: 20120128
  Receipt Date: 20110707
  Transmission Date: 20120608
  Serious: No
  Sender: FDA-Public Use
  Company Number: US-ABBOTT-11P-163-0837092-00

PATIENT
  Sex: Female
  Weight: 54.48 kg

DRUGS (2)
  1. LORAZEPAM [Concomitant]
     Indication: ANXIETY
  2. HUMIRA [Suspect]
     Indication: COLITIS ULCERATIVE
     Dates: start: 20100701

REACTIONS (2)
  - INJECTION SITE SWELLING [None]
  - INJECTION SITE HAEMORRHAGE [None]
